FAERS Safety Report 8591589-X (Version None)
Quarter: 2012Q3

REPORT INFORMATION
  Report Type: 
  Country: None (occurrence: None)
  Receive Date: 20120814
  Receipt Date: 20120808
  Transmission Date: 20120928
  Serious: Yes (Hospitalization, Other)
  Sender: FDA-Public Use
  Company Number: US-PFIZER INC-2012193690

PATIENT
  Age: 53 Year
  Sex: Female
  Weight: 78.458 kg

DRUGS (7)
  1. PREMARIN [Suspect]
     Indication: HOT FLUSH
     Dosage: UNK
     Dates: start: 19940101, end: 19950101
  2. PREMARIN [Suspect]
     Indication: WEIGHT DECREASED
  3. PROGESTIN INJ [Suspect]
     Indication: WEIGHT DECREASED
  4. HYDROCHLOROTHIAZIDE [Concomitant]
     Indication: HYPERTENSION
     Dosage: 12.5 MG, DAILY
  5. NORVASC [Concomitant]
     Indication: HYPERTENSION
     Dosage: 5 MG, DAILY
  6. PROGESTIN INJ [Suspect]
     Indication: HOT FLUSH
     Dosage: UNK
     Dates: start: 19940101, end: 19950101
  7. ATENOLOL [Concomitant]
     Indication: HYPERTENSION
     Dosage: 50 MG, DAILY

REACTIONS (2)
  - OFF LABEL USE [None]
  - BREAST CANCER FEMALE [None]
